FAERS Safety Report 7953827-3 (Version None)
Quarter: 2011Q4

REPORT INFORMATION
  Report Type: 
  Country: None (occurrence: None)
  Receive Date: 20111202
  Receipt Date: 20111122
  Transmission Date: 20120403
  Serious: Yes (Other)
  Sender: FDA-Public Use
  Company Number: US-US-EMD SERONO, INC.-7038810

PATIENT
  Sex: Female
  Weight: 75 kg

DRUGS (3)
  1. VITAMIN D [Concomitant]
  2. REBIF [Suspect]
     Indication: MULTIPLE SCLEROSIS
     Route: 058
     Dates: start: 20061031
  3. ASPIRIN [Concomitant]

REACTIONS (4)
  - TOOTH DISORDER [None]
  - HERPES SIMPLEX [None]
  - BRONCHITIS [None]
  - NASOPHARYNGITIS [None]
